FAERS Safety Report 17650327 (Version 5)
Quarter: 2020Q3

REPORT INFORMATION
  Report Type: Spontaneous
  Country: US (occurrence: US)
  Receive Date: 20200409
  Receipt Date: 20200810
  Transmission Date: 20201102
  Serious: Yes (Death, Hospitalization, Other)
  Sender: FDA-Public Use
  Company Number: US-PFIZER INC-2020144212

PATIENT
  Age: 9 Year
  Sex: Female

DRUGS (15)
  1. PROPOFOL. [Suspect]
     Active Substance: PROPOFOL
     Indication: PAIN MANAGEMENT
  2. FENTANYL. [Concomitant]
     Active Substance: FENTANYL
     Indication: ANAESTHESIA
  3. NALOXONE [Concomitant]
     Active Substance: NALOXONE
     Indication: PAIN MANAGEMENT
     Dosage: UNK
  4. SEVOFLURANE. [Concomitant]
     Active Substance: SEVOFLURANE
     Indication: ANAESTHESIA
  5. PROPOFOL. [Suspect]
     Active Substance: PROPOFOL
     Indication: ANAESTHESIA
     Dosage: 2 MG/KG, UNK
     Route: 040
  6. DEXAMETHASONE. [Concomitant]
     Active Substance: DEXAMETHASONE
     Indication: ANAESTHESIA
     Dosage: UNK
  7. ONDANSETRON [Concomitant]
     Active Substance: ONDANSETRON
     Indication: PAIN MANAGEMENT
  8. FENTANYL. [Concomitant]
     Active Substance: FENTANYL
     Indication: PAIN MANAGEMENT
     Dosage: UNK
  9. MORPHINE [Concomitant]
     Active Substance: MORPHINE
     Indication: PAIN MANAGEMENT
     Dosage: UNK
  10. MORPHINE [Concomitant]
     Active Substance: MORPHINE
     Indication: ANAESTHESIA
  11. SEVOFLURANE. [Concomitant]
     Active Substance: SEVOFLURANE
     Indication: PAIN MANAGEMENT
     Dosage: UNK
  12. DEXAMETHASONE. [Concomitant]
     Active Substance: DEXAMETHASONE
     Indication: PAIN MANAGEMENT
  13. ONDANSETRON [Concomitant]
     Active Substance: ONDANSETRON
     Indication: ANAESTHESIA
     Dosage: UNK
  14. NALOXONE [Concomitant]
     Active Substance: NALOXONE
     Indication: ANAESTHESIA
  15. OXYCODONE [Concomitant]
     Active Substance: OXYCODONE
     Indication: PAIN MANAGEMENT
     Dosage: UNK(EXTENDED RELEASE)

REACTIONS (3)
  - Brugada syndrome [Fatal]
  - Ventricular tachycardia [Fatal]
  - Cardiac arrest [Fatal]
